FAERS Safety Report 17235428 (Version 1)
Quarter: 2020Q1

REPORT INFORMATION
  Report Type: Spontaneous
  Country: US (occurrence: US)
  Receive Date: 20200103
  Receipt Date: 20200103
  Transmission Date: 20200409
  Serious: Yes (Disabling, Other)
  Sender: FDA-Public Use
  Company Number: None

PATIENT
  Age: 38 Year
  Sex: Male
  Weight: 67.5 kg

DRUGS (5)
  1. REISHI MUSHROOMS [Concomitant]
  2. CORDYCEPS MUSHROOMS [Concomitant]
  3. CIPRO [Suspect]
     Active Substance: CIPROFLOXACIN HYDROCHLORIDE
     Indication: GASTROENTERITIS SALMONELLA
     Route: 048
  4. SPIRULINA [Concomitant]
     Active Substance: SPIRULINA
  5. LIONS MANE MUSHROOMS [Concomitant]

REACTIONS (5)
  - Epicondylitis [None]
  - Pain in extremity [None]
  - Radial nerve compression [None]
  - Tendonitis [None]
  - Arthralgia [None]

NARRATIVE: CASE EVENT DATE: 20060612
